FAERS Safety Report 4430281-X (Version None)
Quarter: 2004Q3

REPORT INFORMATION
  Report Type: 
  Country: None (occurrence: None)
  Receive Date: 20040817
  Receipt Date: 20040805
  Transmission Date: 20050211
  Serious: Yes (Death)
  Sender: FDA-Public Use
  Company Number: 2004227101JP

PATIENT
  Sex: Female

DRUGS (4)
  1. CAMPTOSAR [Suspect]
     Indication: OVARIAN CANCER
     Dosage: 65 MG/M2 CYCLIC, IV DRIP
     Route: 041
     Dates: start: 20040701, end: 20040701
  2. CISPLATIN [Suspect]
     Indication: OVARIAN CANCER
     Dosage: 65 MG/M2, CYCLIC, IV DRIP
     Route: 041
     Dates: start: 20040701, end: 20040701
  3. TAXOL [Concomitant]
  4. PARAPLATIN [Concomitant]

REACTIONS (2)
  - LEUKOPENIA [None]
  - THROMBOCYTOPENIA [None]
